FAERS Safety Report 21579955 (Version 1)
Quarter: 2022Q4

REPORT INFORMATION
  Report Type: Spontaneous
  Country: TN (occurrence: TN)
  Receive Date: 20221110
  Receipt Date: 20221110
  Transmission Date: 20230112
  Serious: Yes (Other)
  Sender: FDA-Public Use
  Company Number: TN-BAUSCH-BL-2022-009311

PATIENT

DRUGS (1)
  1. LOTEMAX [Suspect]
     Active Substance: LOTEPREDNOL ETABONATE
     Indication: Corneal transplant
     Route: 031

REACTIONS (2)
  - Corneal graft rejection [Recovering/Resolving]
  - Drug ineffective [Unknown]
